FAERS Safety Report 12736421 (Version 1)
Quarter: 2016Q3

REPORT INFORMATION
  Report Type: Spontaneous
  Country: US (occurrence: US)
  Receive Date: 20160912
  Receipt Date: 20160912
  Transmission Date: 20161109
  Serious: No
  Sender: FDA-Public Use
  Company Number: US-GLAXOSMITHKLINE-US2016131472

PATIENT
  Sex: Female

DRUGS (1)
  1. BREO ELLIPTA [Suspect]
     Active Substance: FLUTICASONE FUROATE\VILANTEROL TRIFENATATE
     Indication: CARDIAC FAILURE CONGESTIVE
     Dosage: 1 PUFF(S), 1D
     Route: 055

REACTIONS (3)
  - Device use error [Recovered/Resolved]
  - Medication error [Recovered/Resolved]
  - Off label use [Unknown]
